FAERS Safety Report 9189374 (Version 1)
Quarter: 2013Q1

REPORT INFORMATION
  Report Type: Spontaneous
  Country: US (occurrence: None)
  Receive Date: 20130322
  Receipt Date: 20130322
  Transmission Date: 20140127
  Serious: Yes (Life-Threatening, Other)
  Sender: FDA-Public Use
  Company Number: None

PATIENT
  Sex: Male
  Weight: 83.01 kg

DRUGS (12)
  1. HURRICANE [Suspect]
     Indication: ANAESTHESIA PROCEDURE
     Dosage: 2 PUMPS PRN TOP
     Route: 061
     Dates: start: 20130117, end: 20130117
  2. LIDOCAINE [Suspect]
     Indication: ANAESTHESIA PROCEDURE
     Route: 061
     Dates: start: 20130117, end: 20130117
  3. AMBIEN [Concomitant]
  4. ALBUTEROL SULFATE [Concomitant]
  5. PULMICORT RESPULES [Concomitant]
  6. VANCOCIN [Concomitant]
  7. TOPROL [Concomitant]
  8. GARAMYCIN [Concomitant]
  9. FENTANYL CITRATE [Concomitant]
  10. VERSED [Concomitant]
  11. PROTONIX [Concomitant]
  12. PHENERGAN [Concomitant]

REACTIONS (2)
  - Methaemoglobinaemia [None]
  - Post procedural complication [None]
